FAERS Safety Report 17356943 (Version 1)
Quarter: 2020Q1

REPORT INFORMATION
  Report Type: Spontaneous
  Country: US (occurrence: US)
  Receive Date: 20200131
  Receipt Date: 20200131
  Transmission Date: 20200409
  Serious: No
  Sender: FDA-Public Use
  Company Number: US-FLEXION THERAPEUTICS, INC.-2019FLS000191

PATIENT
  Age: 62 Year
  Sex: Male

DRUGS (5)
  1. ZILRETTA [Suspect]
     Active Substance: TRIAMCINOLONE ACETONIDE
     Route: 014
     Dates: start: 201906, end: 201906
  2. VOLTAREN [Concomitant]
     Active Substance: DICLOFENAC SODIUM
     Indication: PRODUCT USED FOR UNKNOWN INDICATION
  3. ZILRETTA [Suspect]
     Active Substance: TRIAMCINOLONE ACETONIDE
     Indication: OSTEOARTHRITIS
     Route: 014
     Dates: start: 201903, end: 201903
  4. ZILRETTA [Suspect]
     Active Substance: TRIAMCINOLONE ACETONIDE
     Route: 014
     Dates: start: 2019, end: 2019
  5. ZILRETTA [Suspect]
     Active Substance: TRIAMCINOLONE ACETONIDE
     Route: 014
     Dates: start: 201909, end: 201909

REACTIONS (3)
  - Therapeutic response shortened [Recovered/Resolved]
  - Bone erosion [Unknown]
  - Joint effusion [Unknown]

NARRATIVE: CASE EVENT DATE: 2019
